FAERS Safety Report 4334485-6 (Version None)
Quarter: 2004Q2

REPORT INFORMATION
  Report Type: 
  Country: None (occurrence: None)
  Receive Date: 20040407
  Receipt Date: 20040330
  Transmission Date: 20050107
  Serious: Yes (Hospitalization, Other)
  Sender: FDA-Public Use
  Company Number: US-GLAXOSMITHKLINE-A0505424A

PATIENT
  Age: 45 Year
  Sex: Male

DRUGS (3)
  1. COMBIVIR [Suspect]
     Indication: HIV INFECTION
     Dosage: 1TAB TWICE PER DAY
     Route: 048
     Dates: start: 20020101, end: 20040101
  2. VIREAD [Suspect]
     Indication: HIV INFECTION
     Dosage: 1TAB PER DAY
     Route: 048
     Dates: start: 20020101, end: 20040101
  3. ANDROGEL [Concomitant]

REACTIONS (6)
  - BLOOD TEST ABNORMAL [None]
  - CARDIOMYOPATHY [None]
  - EXTRASYSTOLES [None]
  - FATIGUE [None]
  - NAUSEA [None]
  - PALPITATIONS [None]
